FAERS Safety Report 14186358 (Version 1)
Quarter: 2017Q4

REPORT INFORMATION
  Report Type: Spontaneous
  Country: GB (occurrence: GB)
  Receive Date: 20171114
  Receipt Date: 20171114
  Transmission Date: 20180321
  Serious: Yes (Hospitalization)
  Sender: FDA-Public Use
  Company Number: GB-CONCORDIA PHARMACEUTICALS INC.-GSH201601-000171

PATIENT
  Age: 63 Year
  Sex: Female

DRUGS (3)
  1. PREDNISOLONE. [Suspect]
     Active Substance: PREDNISOLONE
     Route: 065
  2. MYFENAX [Suspect]
     Active Substance: MYCOPHENOLATE MOFETIL
     Route: 065
  3. ADOPORT [Concomitant]
     Active Substance: TACROLIMUS
     Route: 065

REACTIONS (4)
  - Escherichia infection [Unknown]
  - Viral infection [Unknown]
  - Cerebral haemorrhage [Unknown]
  - Sepsis [Unknown]
